FAERS Safety Report 8585461-9 (Version None)
Quarter: 2012Q3

REPORT INFORMATION
  Report Type: 
  Country: None (occurrence: None)
  Receive Date: 20120810
  Receipt Date: 20110614
  Transmission Date: 20120928
  Serious: No
  Sender: FDA-Public Use
  Company Number: US-GLAXOSMITHKLINE-A0931472A

PATIENT
  Age: 80 Year
  Sex: Female

DRUGS (5)
  1. ATENOLOL [Concomitant]
  2. REQUIP XL [Suspect]
     Indication: PARKINSON'S DISEASE
     Dosage: 2MG PER DAY
     Route: 048
     Dates: start: 20110604
  3. IMDUR [Concomitant]
  4. THYROID MEDICATION [Concomitant]
  5. LIPITOR [Concomitant]

REACTIONS (1)
  - SOMNOLENCE [None]
